FAERS Safety Report 7757393-7 (Version None)
Quarter: 2011Q3

REPORT INFORMATION
  Report Type: 
  Country: None (occurrence: None)
  Receive Date: 20110916
  Receipt Date: 20110907
  Transmission Date: 20111222
  Serious: Yes (Death, Hospitalization, Other)
  Sender: FDA-Public Use
  Company Number: US-ACTELION-A-NJ2011-50792

PATIENT

DRUGS (5)
  1. BUMETANIDE [Concomitant]
  2. REVATIO [Concomitant]
  3. CALCIUM CHANNEL BLOCKERS [Concomitant]
  4. VENTAVIS [Suspect]
     Indication: PULMONARY ARTERIAL HYPERTENSION
     Dosage: UNK
     Route: 055
     Dates: start: 20100520
  5. WARFARIN SODIUM [Concomitant]

REACTIONS (8)
  - IMPAIRED HEALING [None]
  - CONFUSIONAL STATE [None]
  - FALL [None]
  - DEATH [None]
  - THYROID CANCER [None]
  - PNEUMONIA [None]
  - DECREASED APPETITE [None]
  - LIMB INJURY [None]
